FAERS Safety Report 9444272 (Version 2)
Quarter: 2013Q4

REPORT INFORMATION
  Report Type: Report from Study
  Country: US (occurrence: US)
  Receive Date: 20130807
  Receipt Date: 20131007
  Transmission Date: 20140711
  Serious: Yes (Death)
  Sender: FDA-Public Use
  Company Number: PHEH2013US016609

PATIENT
  Sex: Female

DRUGS (1)
  1. COMTAN [Suspect]

REACTIONS (2)
  - Leukaemia [Fatal]
  - Parkinson^s disease [Unknown]
